FAERS Safety Report 16657309 (Version 1)
Quarter: 2019Q3

REPORT INFORMATION
  Report Type: Spontaneous
  Country: US (occurrence: US)
  Receive Date: 20190801
  Receipt Date: 20190801
  Transmission Date: 20191004
  Serious: Yes (Other)
  Sender: FDA-Public Use
  Company Number: None

PATIENT
  Age: 55 Year
  Weight: 57.6 kg

DRUGS (1)
  1. PROPOFOL. [Suspect]
     Active Substance: PROPOFOL
     Indication: ANAESTHESIA
     Dates: start: 20190729, end: 20190729

REACTIONS (8)
  - Procedural dizziness [None]
  - Post procedural complication [None]
  - Pain in extremity [None]
  - Asthenia [None]
  - Influenza like illness [None]
  - Eye irritation [None]
  - Dehydration [None]
  - Complication associated with device [None]

NARRATIVE: CASE EVENT DATE: 20190729
